FAERS Safety Report 5990936-2 (Version None)
Quarter: 2008Q4

REPORT INFORMATION
  Report Type: 
  Country: None (occurrence: None)
  Receive Date: 20081211
  Receipt Date: 20080313
  Transmission Date: 20090506
  Serious: No
  Sender: FDA-Public Use
  Company Number: US-AMGEN-KDL269770

PATIENT
  Sex: Female

DRUGS (2)
  1. ENBREL [Suspect]
     Indication: RHEUMATOID ARTHRITIS
     Route: 058
     Dates: start: 20060626
  2. LEFLUNOMIDE [Concomitant]
     Route: 048

REACTIONS (3)
  - BRONCHITIS [None]
  - PNEUMONIA [None]
  - SINUSITIS [None]
